FAERS Safety Report 7942951-7 (Version None)
Quarter: 2011Q4

REPORT INFORMATION
  Report Type: 
  Country: None (occurrence: None)
  Receive Date: 20111128
  Receipt Date: 20111122
  Transmission Date: 20120403
  Serious: Yes (Hospitalization, Other)
  Sender: FDA-Public Use
  Company Number: US-MERCK-1106USA02217

PATIENT
  Age: 47 Year
  Sex: Female
  Weight: 57 kg

DRUGS (10)
  1. FOSAMAX [Suspect]
     Route: 048
     Dates: start: 20020131, end: 20100101
  2. FOSAMAX [Suspect]
     Indication: OSTEOPENIA
     Route: 048
     Dates: start: 20001001, end: 20011201
  3. VITAMIN D (UNSPECIFIED) [Concomitant]
     Route: 065
     Dates: start: 19950101
  4. EVISTA [Suspect]
     Indication: BONE DISORDER
     Route: 065
     Dates: start: 20080101
  5. FOSAMAX [Suspect]
     Indication: OSTEOPOROSIS
     Route: 048
     Dates: start: 20001001, end: 20011201
  6. FOSAMAX [Suspect]
     Route: 048
     Dates: start: 20001001, end: 20090901
  7. FOSAMAX [Suspect]
     Route: 048
     Dates: start: 20001001, end: 20090901
  8. VITAMINS (UNSPECIFIED) [Concomitant]
     Route: 065
  9. FOSAMAX [Suspect]
     Route: 048
     Dates: start: 20020131, end: 20100101
  10. CALCIUM (UNSPECIFIED) [Concomitant]
     Route: 065
     Dates: start: 19850101

REACTIONS (22)
  - BREAST CANCER IN SITU [None]
  - LUNG NEOPLASM [None]
  - INJURY [None]
  - ANKLE FRACTURE [None]
  - SLEEP APNOEA SYNDROME [None]
  - GRANULOMA [None]
  - PROCEDURAL NAUSEA [None]
  - HYPERCALCIURIA [None]
  - FEMUR FRACTURE [None]
  - FALL [None]
  - RHINITIS ALLERGIC [None]
  - FIBULA FRACTURE [None]
  - BREAST HYPERPLASIA [None]
  - LUNG DISORDER [None]
  - CHRONIC OBSTRUCTIVE PULMONARY DISEASE [None]
  - FACE INJURY [None]
  - BONE NEOPLASM MALIGNANT [None]
  - LOW TURNOVER OSTEOPATHY [None]
  - BREAST CYST [None]
  - BREAST MASS [None]
  - MITRAL VALVE PROLAPSE [None]
  - PROCEDURAL VOMITING [None]
